FAERS Safety Report 16498142 (Version 1)
Quarter: 2019Q2

REPORT INFORMATION
  Report Type: Report from Study
  Country: None (occurrence: RO)
  Receive Date: 20190628
  Receipt Date: 20190628
  Transmission Date: 20190711
  Serious: Yes (Death)
  Sender: FDA-Public Use
  Company Number: RO-ABBVIE-19P-135-2837012-00

PATIENT
  Age: 68 Year
  Sex: Female
  Weight: 52 kg

DRUGS (6)
  1. ROSUVASTATIN. [Concomitant]
     Active Substance: ROSUVASTATIN
     Indication: HYPERCHOLESTEROLAEMIA
     Route: 048
     Dates: start: 2012
  2. DUODOPA [Suspect]
     Active Substance: CARBIDOPA\LEVODOPA
     Indication: PARKINSON^S DISEASE
     Dosage: TITRATION: MD:10ML; CD:3.4ML/H; ED:1.6ML/H
     Route: 050
     Dates: start: 20171016, end: 20171020
  3. ASPIRIN. [Concomitant]
     Active Substance: ASPIRIN
     Indication: LACUNAR STROKE
     Route: 048
     Dates: start: 2012
  4. DUODOPA [Suspect]
     Active Substance: CARBIDOPA\LEVODOPA
     Route: 050
     Dates: start: 20171020, end: 20190623
  5. CLONAZEPAM. [Concomitant]
     Active Substance: CLONAZEPAM
     Indication: GENERAL SYMPTOM
     Route: 048
     Dates: start: 2012
  6. DUODOPA [Suspect]
     Active Substance: CARBIDOPA\LEVODOPA
     Route: 050

REACTIONS (1)
  - Death [Fatal]

NARRATIVE: CASE EVENT DATE: 20190623
